FAERS Safety Report 7405129-1 (Version None)
Quarter: 2011Q1

REPORT INFORMATION
  Report Type: 
  Country: None (occurrence: None)
  Receive Date: 20110301
  Receipt Date: 20100318
  Transmission Date: 20110831
  Serious: Yes (Hospitalization)
  Sender: FDA-Public Use
  Company Number: RB-04918-2010

PATIENT
  Age: 1 Day
  Sex: Female

DRUGS (2)
  1. SUBUTEX [Suspect]
     Indication: DRUG DEPENDENCE
     Dosage: 8 MG TRANSPLACENTAL, 4 MG TRANSPLACENTAL
     Route: 064
     Dates: end: 20090101
  2. SUBUTEX [Suspect]
     Indication: DRUG DEPENDENCE
     Dosage: 8 MG TRANSPLACENTAL, 4 MG TRANSPLACENTAL
     Route: 064
     Dates: end: 20100201

REACTIONS (2)
  - DRUG WITHDRAWAL SYNDROME NEONATAL [None]
  - DRUG EXPOSURE DURING PREGNANCY [None]
